FAERS Safety Report 24933451 (Version 1)
Quarter: 2025Q1

REPORT INFORMATION
  Report Type: Spontaneous
  Country: US (occurrence: US)
  Receive Date: 20250206
  Receipt Date: 20250206
  Transmission Date: 20250408
  Serious: Yes (Death, Other)
  Sender: AUROBINDO
  Company Number: US-AUROBINDO-AUR-APL-2025-005511

PATIENT
  Age: 53 Year
  Sex: Male

DRUGS (8)
  1. OXACILLIN [Suspect]
     Active Substance: OXACILLIN SODIUM
     Indication: Meningitis bacterial
     Route: 065
  2. OXACILLIN [Suspect]
     Active Substance: OXACILLIN SODIUM
     Indication: Staphylococcal bacteraemia
  3. CEFTAROLINE FOSAMIL [Suspect]
     Active Substance: CEFTAROLINE FOSAMIL
     Indication: Meningitis bacterial
     Route: 065
  4. CEFTAROLINE FOSAMIL [Suspect]
     Active Substance: CEFTAROLINE FOSAMIL
     Indication: Staphylococcal bacteraemia
  5. VANCOMYCIN [Concomitant]
     Active Substance: VANCOMYCIN
     Indication: Meningitis bacterial
     Route: 065
  6. CEFEPIME [Concomitant]
     Active Substance: CEFEPIME HYDROCHLORIDE
     Indication: Meningitis bacterial
     Dosage: 2 GRAM, 3 TIMES A DAY (EVERY 8 HOURS))
     Route: 065
  7. AMPICILLIN [Concomitant]
     Active Substance: AMPICILLIN
     Indication: Meningitis bacterial
     Route: 065
  8. SODIUM BICARBONATE [Concomitant]
     Active Substance: SODIUM BICARBONATE
     Indication: Blood lactic acid increased
     Route: 065

REACTIONS (1)
  - Drug ineffective [Fatal]
